FAERS Safety Report 5372733-4 (Version None)
Quarter: 2007Q2

REPORT INFORMATION
  Report Type: 
  Country: None (occurrence: None)
  Receive Date: 20070619
  Receipt Date: 20061024
  Transmission Date: 20071010
  Serious: Yes (Other)
  Sender: FDA-Public Use
  Company Number: WAES 0610USA12663

PATIENT
  Age: 87 Year
  Sex: Female

DRUGS (5)
  1. COZAAR [Suspect]
     Indication: HYPERTENSION
     Dates: start: 19950101
  2. COUMADIN [Concomitant]
  3. DEMADEX [Concomitant]
  4. NORVASC [Concomitant]
  5. TOPROL-XL [Concomitant]

REACTIONS (2)
  - CEREBROVASCULAR ACCIDENT [None]
  - MYOCARDIAL INFARCTION [None]
